FAERS Safety Report 23909532 (Version 1)
Quarter: 2024Q2

REPORT INFORMATION
  Report Type: Spontaneous
  Country: PL (occurrence: PL)
  Receive Date: 20240528
  Receipt Date: 20240528
  Transmission Date: 20240715
  Serious: Yes (Other)
  Sender: FDA-Public Use
  Company Number: PL-GILEAD-2024-0674296

PATIENT
  Age: 51 Year
  Sex: Male

DRUGS (1)
  1. BIKTARVY [Suspect]
     Active Substance: BICTEGRAVIR SODIUM\EMTRICITABINE\TENOFOVIR ALAFENAMIDE FUMARATE
     Indication: Product used for unknown indication
     Dosage: UNK
     Route: 065
     Dates: start: 202309

REACTIONS (4)
  - Gastrointestinal obstruction [Unknown]
  - Volvulus [Unknown]
  - Immune reconstitution inflammatory syndrome [Unknown]
  - Mesenteric lymphadenitis [Unknown]
